FAERS Safety Report 13112554 (Version 1)
Quarter: 2017Q1

REPORT INFORMATION
  Report Type: Report from Study
  Country: US (occurrence: US)
  Receive Date: 20170113
  Receipt Date: 20170113
  Transmission Date: 20170428
  Serious: Yes (Other)
  Sender: FDA-Public Use
  Company Number: US-UCBSA-2017001335

PATIENT
  Sex: Female

DRUGS (2)
  1. VIMPAT [Suspect]
     Active Substance: LACOSAMIDE
     Indication: SEIZURE
     Dosage: 100MG TABLET
  2. VIMPAT [Suspect]
     Active Substance: LACOSAMIDE
     Dosage: 200MG TABLET

REACTIONS (3)
  - Dizziness [Unknown]
  - Brain lobectomy [Unknown]
  - Somnolence [Unknown]
